FAERS Safety Report 26141055 (Version 1)
Quarter: 2025Q4

REPORT INFORMATION
  Report Type: Report from Study
  Country: US (occurrence: US)
  Receive Date: 20251210
  Receipt Date: 20251210
  Transmission Date: 20260118
  Serious: Yes (Death)
  Sender: ABBVIE
  Company Number: US-ABBVIE-6583366

PATIENT
  Sex: Female

DRUGS (1)
  1. DIVALPROEX SODIUM ER [Suspect]
     Active Substance: DIVALPROEX SODIUM
     Indication: Product used for unknown indication
     Dosage: FORM STRENGTH: 250 MILLIGRAM
     Route: 048

REACTIONS (1)
  - Death [Fatal]
